FAERS Safety Report 4781276-8 (Version None)
Quarter: 2005Q3

REPORT INFORMATION
  Report Type: 
  Country: None (occurrence: None)
  Receive Date: 20050928
  Receipt Date: 20050818
  Transmission Date: 20060218
  Serious: Yes (Death, Life-Threatening)
  Sender: FDA-Public Use
  Company Number: DE-GLAXOSMITHKLINE-D0047330A

PATIENT
  Age: 62 Year
  Sex: Female
  Weight: 65 kg

DRUGS (8)
  1. ESKAZOLE [Suspect]
     Indication: ECHINOCOCCIASIS
     Dosage: 800MG PER DAY
     Route: 048
     Dates: start: 20050809, end: 20050816
  2. SALOFALK [Concomitant]
     Dosage: 1500MG PER DAY
     Route: 048
  3. URSO FALK [Concomitant]
     Dosage: 1500MG PER DAY
     Route: 048
  4. ALDACTONE [Concomitant]
     Indication: HEPATIC CIRRHOSIS
     Dosage: 100MG PER DAY
     Route: 048
  5. HUMATIN [Concomitant]
     Indication: HEPATIC CIRRHOSIS
     Dosage: 3G PER DAY
     Route: 048
  6. PANTOPRAZOL [Concomitant]
     Dosage: 40MG PER DAY
     Route: 065
  7. LACTULOSE [Concomitant]
     Indication: HEPATIC CIRRHOSIS
     Dosage: 25ML THREE TIMES PER DAY
     Route: 065
  8. EUTHYROX [Concomitant]
     Indication: HYPOTHYROIDISM
     Dosage: 175NG PER DAY
     Route: 065

REACTIONS (1)
  - PANCYTOPENIA [None]
